FAERS Safety Report 20380878 (Version 2)
Quarter: 2022Q1

REPORT INFORMATION
  Report Type: Spontaneous
  Country: KR (occurrence: KR)
  Receive Date: 20220127
  Receipt Date: 20220201
  Transmission Date: 20220424
  Serious: Yes (Other)
  Sender: FDA-Public Use
  Company Number: KR-BAUSCH-BL-2022-002228

PATIENT
  Age: 44 Year
  Sex: Female

DRUGS (2)
  1. VERTEPORFIN [Suspect]
     Active Substance: VERTEPORFIN
     Indication: Chorioretinopathy
     Route: 065
  2. INDOCYANINE GREEN [Concomitant]
     Active Substance: INDOCYANINE GREEN
     Indication: Product used for unknown indication
     Dosage: GALENICAL FORM

REACTIONS (2)
  - Choroidal neovascularisation [Recovered/Resolved]
  - Product use in unapproved indication [Recovered/Resolved]
